FAERS Safety Report 10375959 (Version 1)
Quarter: 2014Q3

REPORT INFORMATION
  Report Type: Spontaneous
  Country: US (occurrence: US)
  Receive Date: 20140811
  Receipt Date: 20140811
  Transmission Date: 20150326
  Serious: No
  Sender: FDA-Public Use
  Company Number: US-PFIZER INC-2014221905

PATIENT
  Age: 83 Year
  Sex: Female
  Weight: 81.63 kg

DRUGS (1)
  1. CELEBREX [Suspect]
     Active Substance: CELECOXIB
     Dosage: UNK
     Dates: start: 2010

REACTIONS (2)
  - Rash macular [Unknown]
  - Drug hypersensitivity [Unknown]
